FAERS Safety Report 9745158 (Version 3)
Quarter: 2016Q3

REPORT INFORMATION
  Report Type: Report from Study
  Country: DE (occurrence: DE)
  Receive Date: 20131211
  Receipt Date: 20160915
  Transmission Date: 20161109
  Serious: Yes (Hospitalization)
  Sender: FDA-Public Use
  Company Number: DE-ROCHE-1300939

PATIENT
  Age: 76 Year
  Sex: Female
  Weight: 58 kg

DRUGS (39)
  1. ZOFRAN [Concomitant]
     Active Substance: ONDANSETRON HYDROCHLORIDE
     Dosage: DAY 1
     Route: 042
     Dates: start: 20130814, end: 20131021
  2. PERENTEROL FORTE [Concomitant]
     Active Substance: SACCHAROMYCES CEREVISIAE
     Indication: POLYNEUROPATHY
     Route: 048
     Dates: start: 20131106, end: 20131114
  3. PERENTEROL FORTE [Concomitant]
     Active Substance: SACCHAROMYCES CEREVISIAE
     Route: 048
     Dates: start: 20131115
  4. AUGMENTIN [Concomitant]
     Active Substance: AMOXICILLIN\CLAVULANATE POTASSIUM
     Route: 048
     Dates: start: 20131106, end: 20131108
  5. COMBACTAM [Concomitant]
     Active Substance: SULBACTAM SODIUM
     Route: 042
     Dates: start: 20131108, end: 20131113
  6. XIMOVAN [Concomitant]
     Indication: PROPHYLAXIS
     Route: 048
     Dates: start: 20130928
  7. FORTECORTIN [Concomitant]
     Active Substance: DEXAMETHASONE
     Dosage: ON DAY 0 AND DAY 1
     Route: 048
     Dates: start: 20130813, end: 20131021
  8. SOLU-DECORTIN H [Concomitant]
     Route: 042
     Dates: start: 20131018, end: 20131018
  9. CIPRAMIL [Concomitant]
     Active Substance: CITALOPRAM HYDROBROMIDE
     Indication: DEPRESSION
     Route: 048
     Dates: start: 20131106, end: 20131114
  10. IRENAT [Concomitant]
     Active Substance: SODIUM PERCHLORATE MONOHYDRATE
     Route: 048
     Dates: start: 20131106, end: 20131106
  11. PIPRIL [Concomitant]
     Active Substance: PIPERACILLIN SODIUM
     Route: 042
     Dates: start: 20131108, end: 20131112
  12. BEVACIZUMAB [Suspect]
     Active Substance: BEVACIZUMAB
     Indication: NON-SMALL CELL LUNG CANCER
     Dosage: MOST RECENT DOSE PRIOR TO SAE: 21/OCT/2013, 855 MG
     Route: 042
     Dates: start: 20130814
  13. NACL .9% [Concomitant]
     Dosage: ON DAY 1
     Route: 042
     Dates: start: 20130814, end: 20131021
  14. LYRICA [Concomitant]
     Active Substance: PREGABALIN
     Route: 048
     Dates: start: 20131106
  15. PARACETAMOL [Concomitant]
     Active Substance: ACETAMINOPHEN
     Route: 048
     Dates: start: 20131111, end: 20131111
  16. CIPROBAY [Concomitant]
     Active Substance: CIPROFLOXACIN
     Route: 042
     Dates: start: 20131111, end: 20131114
  17. NOVALGIN [Concomitant]
     Active Substance: METAMIZOLE SODIUM
     Indication: SPINAL OSTEOARTHRITIS
     Route: 048
     Dates: start: 20131106, end: 20131106
  18. PICTILISIB [Suspect]
     Active Substance: PICTILISIB
     Indication: NON-SMALL CELL LUNG CANCER
     Dosage: MOST RECENT DOSE PRIOR TO SAE: 03/NOV/2013
     Route: 048
     Dates: start: 20130814
  19. TAVEGIL [Concomitant]
     Active Substance: CLEMASTINE FUMARATE
     Dosage: 1 AMPULE ON DAY 1
     Route: 042
     Dates: start: 20130814, end: 20131021
  20. IMODIUM [Concomitant]
     Active Substance: LOPERAMIDE HYDROCHLORIDE
     Indication: DIARRHOEA
     Route: 060
     Dates: start: 20130926
  21. RANITIDIN [Concomitant]
     Active Substance: RANITIDINE HYDROCHLORIDE
     Dosage: 1 AMPULE ON DAY 1
     Route: 042
     Dates: start: 20130814, end: 20131021
  22. LYRICA [Concomitant]
     Active Substance: PREGABALIN
     Indication: POLYNEUROPATHY
     Route: 048
     Dates: start: 20131023, end: 20131023
  23. SOLU-DECORTIN H [Concomitant]
     Route: 042
     Dates: start: 20131107, end: 20131107
  24. PARACETAMOL [Concomitant]
     Active Substance: ACETAMINOPHEN
     Indication: PYREXIA
     Route: 048
     Dates: start: 20131022, end: 20131022
  25. CIPROFLOXACIN. [Concomitant]
     Active Substance: CIPROFLOXACIN
     Route: 048
     Dates: start: 20131115
  26. PACLITAXEL. [Suspect]
     Active Substance: PACLITAXEL
     Indication: NON-SMALL CELL LUNG CANCER
     Dosage: MOST RECENT DOSE PRIOR TO SAE: 21/OCT/2013, 314 MG
     Route: 042
     Dates: start: 20130814
  27. PARACETAMOL [Concomitant]
     Active Substance: ACETAMINOPHEN
     Route: 048
     Dates: start: 20131107, end: 20131107
  28. SAMSCA [Concomitant]
     Active Substance: TOLVAPTAN
     Indication: HYPONATRAEMIA
     Route: 048
     Dates: start: 20131106, end: 20131106
  29. METOCLOPRAMID [Concomitant]
     Active Substance: METOCLOPRAMIDE
     Indication: PROPHYLAXIS OF NAUSEA AND VOMITING
     Route: 042
     Dates: start: 20131106, end: 20131108
  30. CARBOPLATIN. [Suspect]
     Active Substance: CARBOPLATIN
     Indication: NON-SMALL CELL LUNG CANCER
     Dosage: MOST RECENT DOSE PRIOR TO SAE: 21/OCT/2013, 479 MG
     Route: 042
     Dates: start: 20130814
  31. NACL .9% [Concomitant]
     Route: 042
     Dates: start: 20131113, end: 20131114
  32. SOLU-DECORTIN H [Concomitant]
     Route: 042
     Dates: start: 20131022, end: 20131022
  33. PARACETAMOL [Concomitant]
     Active Substance: ACETAMINOPHEN
     Route: 048
     Dates: start: 20131109, end: 20131109
  34. NOVALGIN [Concomitant]
     Active Substance: METAMIZOLE SODIUM
     Route: 048
     Dates: start: 20131110, end: 20131110
  35. SOLU-DECORTIN H [Concomitant]
     Indication: RASH
     Route: 042
     Dates: start: 20131021, end: 20131021
  36. ZOFRAN [Concomitant]
     Active Substance: ONDANSETRON HYDROCHLORIDE
     Dosage: ON DAY 1
     Route: 048
     Dates: start: 20130814, end: 20131021
  37. PARACETAMOL [Concomitant]
     Active Substance: ACETAMINOPHEN
     Route: 042
     Dates: start: 20131108, end: 20131108
  38. FENISTIL (GERMANY) [Concomitant]
     Indication: RASH
     Route: 042
     Dates: start: 20131018, end: 20131018
  39. ALFASON [Concomitant]
     Active Substance: HYDROCORTISONE BUTYRATE
     Indication: RASH
     Route: 061
     Dates: start: 20131019, end: 20131105

REACTIONS (1)
  - Pancytopenia [Not Recovered/Not Resolved]

NARRATIVE: CASE EVENT DATE: 20131106
